FAERS Safety Report 8387595-0 (Version None)
Quarter: 2012Q2

REPORT INFORMATION
  Report Type: 
  Country: None (occurrence: None)
  Receive Date: 20120525
  Receipt Date: 20120523
  Transmission Date: 20120825
  Serious: Yes (Other)
  Sender: FDA-Public Use
  Company Number: PHHY2011JP74667

PATIENT
  Age: 72 Year
  Sex: Male

DRUGS (2)
  1. ZOMETA [Suspect]
     Indication: METASTASES TO BONE
     Dosage: 4 MG, PER ADMINISTRATION
     Route: 042
     Dates: start: 20081001
  2. DEXAMETHASONE [Concomitant]

REACTIONS (14)
  - OSTEONECROSIS OF JAW [None]
  - MUCOSAL HAEMORRHAGE [None]
  - OSTEOLYSIS [None]
  - BLOOD PRESSURE SYSTOLIC DECREASED [None]
  - PYELONEPHRITIS ACUTE [None]
  - URINARY TRACT INFECTION [None]
  - SWELLING [None]
  - DISUSE SYNDROME [None]
  - MOUTH HAEMORRHAGE [None]
  - TOOTH LOSS [None]
  - CARDIOVASCULAR INSUFFICIENCY [None]
  - EXPOSED BONE IN JAW [None]
  - JAW FRACTURE [None]
  - MALNUTRITION [None]
